FAERS Safety Report 9181676 (Version 1)
Quarter: 2013Q1

REPORT INFORMATION
  Report Type: Spontaneous
  Country: JP (occurrence: JP)
  Receive Date: 20130322
  Receipt Date: 20130322
  Transmission Date: 20140127
  Serious: Yes (Other)
  Sender: FDA-Public Use
  Company Number: JP-JNJFOC-20130309728

PATIENT
  Age: 87 Year
  Sex: Male

DRUGS (6)
  1. REMINYL [Suspect]
     Indication: DEMENTIA
     Route: 048
     Dates: start: 20130130
  2. TENORMIN [Concomitant]
     Route: 048
  3. NORVASC [Concomitant]
     Route: 048
  4. WARFARIN POTASSIUM [Concomitant]
     Route: 048
  5. LUPRAC [Concomitant]
     Route: 048
  6. BLOPRESS [Concomitant]
     Route: 048

REACTIONS (1)
  - Loss of consciousness [Recovered/Resolved]
